FAERS Safety Report 9316084 (Version 1)
Quarter: 2013Q2

REPORT INFORMATION
  Report Type: Spontaneous
  Country: US (occurrence: US)
  Receive Date: 20130530
  Receipt Date: 20130530
  Transmission Date: 20140414
  Serious: No
  Sender: FDA-Public Use
  Company Number: US-BIOGENIDEC-2013BI048004

PATIENT
  Sex: Female

DRUGS (2)
  1. TYSABRI [Suspect]
     Indication: MULTIPLE SCLEROSIS
     Route: 042
     Dates: start: 2013
  2. AVONEX [Concomitant]
     Indication: MULTIPLE SCLEROSIS

REACTIONS (4)
  - Mental impairment [Unknown]
  - Gait disturbance [Unknown]
  - Mobility decreased [Unknown]
  - Drug ineffective [Unknown]
